FAERS Safety Report 15791397 (Version 1)
Quarter: 2019Q1

REPORT INFORMATION
  Report Type: Spontaneous
  Country: US (occurrence: US)
  Receive Date: 20190104
  Receipt Date: 20190104
  Transmission Date: 20190417
  Serious: Yes (Life-Threatening, Hospitalization, Disabling)
  Sender: FDA-Public Use
  Company Number: None

PATIENT
  Age: 43 Year
  Sex: Male
  Weight: 94.5 kg

DRUGS (1)
  1. CIPRO [Suspect]
     Active Substance: CIPROFLOXACIN HYDROCHLORIDE
     Indication: PYREXIA
     Route: 048
     Dates: start: 20180803, end: 20180813

REACTIONS (10)
  - Tendon disorder [None]
  - Tendon rupture [None]
  - Muscle rupture [None]
  - Neck pain [None]
  - Pain in extremity [None]
  - Back pain [None]
  - Tendon injury [None]
  - Deep vein thrombosis [None]
  - Inflammation [None]
  - Arthralgia [None]

NARRATIVE: CASE EVENT DATE: 20180810
